FAERS Safety Report 15575029 (Version 1)
Quarter: 2018Q4

REPORT INFORMATION
  Report Type: Spontaneous
  Country: CN (occurrence: CN)
  Receive Date: 20181101
  Receipt Date: 20181101
  Transmission Date: 20190205
  Serious: Yes (Hospitalization)
  Sender: FDA-Public Use
  Company Number: CN-BAYER-2018-202320

PATIENT
  Age: 71 Year
  Sex: Female
  Weight: 62 kg

DRUGS (2)
  1. CLARITYNE 10 MG [Suspect]
     Active Substance: LORATADINE
     Indication: PRURITUS
  2. CLARITYNE 10 MG [Suspect]
     Active Substance: LORATADINE
     Indication: RASH
     Dosage: 1 DF, QD
     Route: 048
     Dates: start: 20180908, end: 20180908

REACTIONS (3)
  - Vomiting [Recovering/Resolving]
  - Nausea [Recovering/Resolving]
  - Abdominal pain [Recovering/Resolving]

NARRATIVE: CASE EVENT DATE: 20180909
